FAERS Safety Report 9866349 (Version 2)
Quarter: 2014Q1

REPORT INFORMATION
  Report Type: Spontaneous
  Country: CH (occurrence: CH)
  Receive Date: 20140203
  Receipt Date: 20140207
  Transmission Date: 20141002
  Serious: Yes (Other)
  Sender: FDA-Public Use
  Company Number: CH-009507513-1401CHE014462

PATIENT
  Age: 56 Year
  Sex: Male

DRUGS (2)
  1. ATRIPLA [Suspect]
     Indication: HIV INFECTION
     Dosage: UNK
     Route: 048
     Dates: start: 201101
  2. FOSAVANCE [Suspect]
     Indication: OSTEOPOROSIS
     Dosage: 9.8 MG
     Route: 048
     Dates: start: 2010, end: 20130915

REACTIONS (1)
  - Osteonecrosis [Recovering/Resolving]
